FAERS Safety Report 8178631-5 (Version None)
Quarter: 2012Q1

REPORT INFORMATION
  Report Type: 
  Country: None (occurrence: None)
  Receive Date: 20120301
  Receipt Date: 20120224
  Transmission Date: 20120608
  Serious: Yes (Hospitalization, Other)
  Sender: FDA-Public Use
  Company Number: FR-MERCK-1202FRA00130

PATIENT
  Age: 77 Year
  Sex: Male

DRUGS (5)
  1. SINGULAIR [Suspect]
     Indication: BRONCHITIS CHRONIC
     Route: 048
     Dates: start: 20080501
  2. LERCANIDIPINE HYDROCHLORIDE [Concomitant]
     Indication: HYPERTENSION
     Route: 048
  3. ROSUVASTATIN CALCIUM [Concomitant]
     Route: 048
     Dates: end: 20111001
  4. CLOPIDOGREL BISULFATE [Concomitant]
     Route: 048
  5. ESOMEPRAZOLE MAGNESIUM [Concomitant]
     Route: 048

REACTIONS (7)
  - DRY MOUTH [None]
  - OFF LABEL USE [None]
  - ALLERGIC GRANULOMATOUS ANGIITIS [None]
  - CORONARY ARTERY DISEASE [None]
  - CARPAL TUNNEL SYNDROME [None]
  - INTERVERTEBRAL DISC PROTRUSION [None]
  - IN-STENT CORONARY ARTERY RESTENOSIS [None]
